FAERS Safety Report 8849962 (Version 1)
Quarter: 2012Q4

REPORT INFORMATION
  Report Type: Report from Study
  Country: BR (occurrence: BR)
  Receive Date: 20121019
  Receipt Date: 20121019
  Transmission Date: 20130627
  Serious: Yes (Other)
  Sender: FDA-Public Use
  Company Number: BR-ROCHE-1147006

PATIENT
  Age: 58 Year
  Sex: Female
  Weight: 56 kg

DRUGS (2)
  1. BEVACIZUMAB [Suspect]
     Indication: COLORECTAL CANCER
     Dosage: 28 cycles, interval of 15 days
     Route: 065
     Dates: start: 20111028, end: 20121010
  2. CAPECITABINE [Suspect]
     Indication: COLORECTAL CANCER
     Dosage: 3 weeks with 15 days interval
     Route: 065
     Dates: start: 20101028, end: 20121010

REACTIONS (1)
  - Disease progression [Unknown]
